FAERS Safety Report 17655879 (Version 1)
Quarter: 2020Q2

REPORT INFORMATION
  Report Type: Spontaneous
  Country: US (occurrence: US)
  Receive Date: 20200409
  Receipt Date: 20200409
  Transmission Date: 20200713
  Serious: Yes (Disabling)
  Sender: FDA-Public Use
  Company Number: None

PATIENT
  Age: 70 Year
  Sex: Male
  Weight: 121.11 kg

DRUGS (1)
  1. GABAPENTIN (GABAPENTIN 400MG CAP) [Suspect]
     Active Substance: GABAPENTIN
     Indication: PAIN
     Route: 048
     Dates: start: 20181026

REACTIONS (4)
  - Toxic encephalopathy [None]
  - Confusional state [None]
  - Tremor [None]
  - Acute kidney injury [None]

NARRATIVE: CASE EVENT DATE: 20190131
